FAERS Safety Report 12220156 (Version 2)
Quarter: 2016Q2

REPORT INFORMATION
  Report Type: Spontaneous
  Country: CO (occurrence: CO)
  Receive Date: 20160330
  Receipt Date: 20160627
  Transmission Date: 20160815
  Serious: Yes (Other)
  Sender: FDA-Public Use
  Company Number: CO-ROCHE-1733471

PATIENT
  Sex: Female

DRUGS (1)
  1. VALIXA [Suspect]
     Active Substance: VALGANCICLOVIR
     Indication: LIVER TRANSPLANT
     Route: 048

REACTIONS (1)
  - Epstein-Barr viraemia [Recovering/Resolving]
